FAERS Safety Report 19449161 (Version 1)
Quarter: 2021Q2

REPORT INFORMATION
  Report Type: Spontaneous
  Country: HR (occurrence: HR)
  Receive Date: 20210622
  Receipt Date: 20210622
  Transmission Date: 20210717
  Serious: Yes (Other)
  Sender: FDA-Public Use
  Company Number: HR-B.I. PHARMACEUTICALS,INC./RIDGEFIELD-2021-BI-108788

PATIENT
  Age: 73 Year
  Sex: Female

DRUGS (3)
  1. VARGATEF [Suspect]
     Active Substance: NINTEDANIB
  2. VARGATEF [Suspect]
     Active Substance: NINTEDANIB
     Indication: ADENOCARCINOMA
     Route: 065
     Dates: start: 201910
  3. DOCETAXEL. [Concomitant]
     Active Substance: DOCETAXEL
     Indication: ADENOCARCINOMA
     Dates: start: 201910

REACTIONS (6)
  - Adenocarcinoma [Unknown]
  - Hypertension [Unknown]
  - Diarrhoea [Recovered/Resolved]
  - Alanine aminotransferase increased [Unknown]
  - Febrile neutropenia [Recovered/Resolved]
  - Anal abscess [Recovered/Resolved]
